FAERS Safety Report 18497094 (Version 7)
Quarter: 2020Q4

REPORT INFORMATION
  Report Type: Spontaneous
  Country: BR (occurrence: BR)
  Receive Date: 20201112
  Receipt Date: 20201230
  Transmission Date: 20210114
  Serious: Yes (Other)
  Sender: FDA-Public Use
  Company Number: BR-PFIZER INC-2014338171

PATIENT
  Age: 4 Year
  Sex: Female
  Weight: 13 kg

DRUGS (2)
  1. GENOTROPIN [Suspect]
     Active Substance: SOMATROPIN
     Dosage: 0.6 MG, SEVEN TIMES PER WEEK
     Route: 058
  2. GENOTROPIN [Suspect]
     Active Substance: SOMATROPIN
     Indication: GROWTH HORMONE DEFICIENCY
     Dosage: 0.45 MG, SEVEN TIMES PER WEEK
     Route: 058
     Dates: start: 20141125

REACTIONS (9)
  - Injection site pain [Unknown]
  - Renal disorder [Unknown]
  - Irritability [Unknown]
  - Coronavirus infection [Unknown]
  - Injection site discolouration [Unknown]
  - Product complaint [Unknown]
  - Headache [Unknown]
  - Idiopathic intracranial hypertension [Recovered/Resolved]
  - Migraine [Unknown]

NARRATIVE: CASE EVENT DATE: 2015
